FAERS Safety Report 21780696 (Version 1)
Quarter: 2022Q4

REPORT INFORMATION
  Report Type: Other
  Country: AU (occurrence: AU)
  Receive Date: 20221227
  Receipt Date: 20221227
  Transmission Date: 20230113
  Serious: No
  Sender: FDA-Public Use
  Company Number: AU-TOLMAR, INC.-22AU038059

PATIENT
  Sex: Male

DRUGS (1)
  1. ELIGARD [Suspect]
     Active Substance: LEUPROLIDE ACETATE
     Indication: Prostate cancer
     Dosage: UNK
     Dates: start: 202211

REACTIONS (4)
  - Intercepted product administration error [Unknown]
  - Product physical consistency issue [Unknown]
  - Drug administered in wrong device [Unknown]
  - Prostatic specific antigen abnormal [Unknown]
